FAERS Safety Report 8402720-0 (Version None)
Quarter: 2012Q2

REPORT INFORMATION
  Report Type: 
  Country: None (occurrence: None)
  Receive Date: 20120601
  Receipt Date: 20120522
  Transmission Date: 20120825
  Serious: Yes (Hospitalization, Other)
  Sender: FDA-Public Use
  Company Number: BE-JNJFOC-20101209044

PATIENT
  Sex: Male
  Weight: 78 kg

DRUGS (6)
  1. REMICADE [Suspect]
     Indication: CROHN'S DISEASE
     Route: 042
     Dates: start: 20100913
  2. REMICADE [Suspect]
     Route: 042
     Dates: start: 20100719
  3. SULFASALAZINE [Concomitant]
     Indication: CROHN'S DISEASE
     Dates: start: 20060526
  4. REMICADE [Suspect]
     Route: 042
     Dates: start: 20101108
  5. AMIODARONE HCL [Concomitant]
     Indication: ATRIAL FIBRILLATION
     Dates: start: 20081127
  6. BISOPROLOL FUMARATE [Concomitant]
     Indication: ATRIAL FIBRILLATION
     Dates: start: 20081127

REACTIONS (1)
  - LARYNGEAL CANCER [None]
